FAERS Safety Report 8813742 (Version 2)
Quarter: 2013Q1

REPORT INFORMATION
  Report Type: Spontaneous
  Country: FI (occurrence: FI)
  Receive Date: 20120928
  Receipt Date: 20130102
  Transmission Date: 20140127
  Serious: Yes (Hospitalization)
  Sender: FDA-Public Use
  Company Number: FI-ROCHE-1129908

PATIENT
  Age: 6 Year
  Sex: Male

DRUGS (5)
  1. ROACTEMRA [Suspect]
     Indication: POLYARTHRITIS
     Route: 065
     Dates: start: 20110530
  2. KINERET [Concomitant]
  3. NAPROXEN [Concomitant]
     Dosage: TWICE
     Route: 065
  4. METHOTREXATE [Concomitant]
     Dosage: ONCE A WEEK
     Route: 048
  5. CORTICOSTEROID (UNK INGREDIENTS) [Concomitant]
     Dosage: ONCE A DAY
     Route: 048

REACTIONS (2)
  - Sepsis [Recovered/Resolved]
  - Arthropathy [Recovered/Resolved]
